FAERS Safety Report 4972936-4 (Version None)
Quarter: 2006Q2

REPORT INFORMATION
  Report Type: 
  Country: None (occurrence: None)
  Receive Date: 20060410
  Receipt Date: 20060321
  Transmission Date: 20061013
  Serious: Yes (Death)
  Sender: FDA-Public Use
  Company Number: US200603005387

PATIENT
  Age: 64 Year
  Sex: Female

DRUGS (2)
  1. TERIPARATIDE (TERIPARATIDE) PEN, DISPOSABLE [Suspect]
     Indication: OSTEOPOROSIS
     Dates: start: 20050907
  2. FORTEO [Concomitant]

REACTIONS (1)
  - DEATH [None]
